FAERS Safety Report 5056308-2 (Version None)
Quarter: 2006Q3

REPORT INFORMATION
  Report Type: 
  Country: None (occurrence: None)
  Receive Date: 20060720
  Receipt Date: 20060707
  Transmission Date: 20061208
  Serious: Yes (Hospitalization)
  Sender: FDA-Public Use
  Company Number: PHEH2006US08818

PATIENT
  Age: 24 Year
  Sex: Female

DRUGS (4)
  1. ZELNORM [Suspect]
     Dosage: UNK, UNK
  2. ZELNORM [Suspect]
     Dosage: UNK, UNK
     Dates: start: 20060601
  3. PROTONIX [Suspect]
     Dates: start: 20060601
  4. PROTONIX [Suspect]
     Dosage: UNK, UNK

REACTIONS (3)
  - DISEASE RECURRENCE [None]
  - THERAPEUTIC RESPONSE UNEXPECTED [None]
  - VOMITING [None]
